FAERS Safety Report 12421415 (Version 1)
Quarter: 2016Q2

REPORT INFORMATION
  Report Type: Spontaneous
  Country: DE (occurrence: JP)
  Receive Date: 20160531
  Receipt Date: 20160531
  Transmission Date: 20160815
  Serious: Yes (Hospitalization)
  Sender: FDA-Public Use
  Company Number: JP-FRI-1000084204

PATIENT
  Age: 84 Year
  Sex: Female

DRUGS (6)
  1. MERCAZOLE [Concomitant]
     Active Substance: CARBIMAZOLE
  2. MEMANTINE. [Suspect]
     Active Substance: MEMANTINE
     Indication: PRODUCT USED FOR UNKNOWN INDICATION
     Dosage: 20 MG
     Route: 048
     Dates: end: 20151229
  3. VALSARTAN. [Concomitant]
     Active Substance: VALSARTAN
  4. DYDRENE [Concomitant]
     Active Substance: NITROGLYCERIN
  5. EXELON [Suspect]
     Active Substance: RIVASTIGMINE TARTRATE
     Indication: DEMENTIA ALZHEIMER^S TYPE
     Dosage: 18 MG
     Route: 062
     Dates: end: 20151229
  6. DILAZEP HYDROCHLORIDE [Concomitant]
     Active Substance: DILAZEP DIHYDROCHLORIDE

REACTIONS (5)
  - Hyperhidrosis [Recovered/Resolved]
  - Extrapyramidal disorder [Recovered/Resolved]
  - Dyskinesia [Recovered/Resolved]
  - Pain [Recovered/Resolved]
  - Trismus [Recovered/Resolved]

NARRATIVE: CASE EVENT DATE: 20151225
